FAERS Safety Report 5533978-3 (Version None)
Quarter: 2007Q4

REPORT INFORMATION
  Report Type: 
  Country: None (occurrence: None)
  Receive Date: 20071130
  Receipt Date: 20071121
  Transmission Date: 20080405
  Serious: Yes (Hospitalization)
  Sender: FDA-Public Use
  Company Number: 2007BI022534

PATIENT
  Age: 61 Year
  Sex: Female

DRUGS (3)
  1. NATALIZUMAB [Suspect]
     Indication: MULTIPLE SCLEROSIS
     Dosage: 300 MG;QM;IV
     Route: 042
     Dates: start: 20061219
  2. AVONEX [Concomitant]
  3. CARBAMAZEPINE [Concomitant]

REACTIONS (4)
  - BRAIN SCAN ABNORMAL [None]
  - CONVULSION [None]
  - INFLAMMATION [None]
  - NERVOUS SYSTEM DISORDER [None]
